FAERS Safety Report 9918678 (Version 1)
Quarter: 2014Q1

REPORT INFORMATION
  Report Type: Spontaneous
  Country: US (occurrence: US)
  Receive Date: 20140224
  Receipt Date: 20140224
  Transmission Date: 20141002
  Serious: Yes (Other)
  Sender: FDA-Public Use
  Company Number: US-TEVA-463846USA

PATIENT
  Age: 51 Year
  Sex: Male

DRUGS (4)
  1. AMOXICILLIN [Suspect]
  2. BACTRIM [Suspect]
     Indication: PYREXIA
     Route: 065
  3. BACTRIM [Suspect]
     Indication: OROPHARYNGEAL PAIN
     Route: 065
  4. BACTRIM [Suspect]
     Indication: MALAISE
     Route: 065

REACTIONS (2)
  - Rhabdomyolysis [Unknown]
  - Gastritis [Unknown]
